FAERS Safety Report 4506812-8 (Version None)
Quarter: 2004Q4

REPORT INFORMATION
  Report Type: 
  Country: None (occurrence: None)
  Receive Date: 20041122
  Receipt Date: 20040917
  Transmission Date: 20050328
  Serious: Yes (Other)
  Sender: FDA-Public Use
  Company Number: JP-GLAXOSMITHKLINE-B0345991A

PATIENT
  Age: 78 Year
  Sex: Male

DRUGS (3)
  1. VALTREX [Suspect]
     Indication: HERPES SIMPLEX
     Dosage: 500MG TWICE PER DAY
     Route: 048
     Dates: start: 20040906, end: 20040907
  2. ARASENA-A [Concomitant]
     Indication: HERPES SIMPLEX
     Dosage: 1G PER DAY
     Route: 061
     Dates: start: 20040906, end: 20040907
  3. LIDOMEX [Concomitant]
     Indication: SEBORRHOEIC DERMATITIS
     Dosage: 2G PER DAY
     Route: 061
     Dates: start: 19910101

REACTIONS (6)
  - DRUG ERUPTION [None]
  - HOARSENESS [None]
  - HYPERSENSITIVITY [None]
  - OROPHARYNGEAL SWELLING [None]
  - PHARYNGOLARYNGEAL PAIN [None]
  - THROAT IRRITATION [None]
